FAERS Safety Report 5264049-1 (Version None)
Quarter: 2007Q1

REPORT INFORMATION
  Report Type: 
  Country: None (occurrence: None)
  Receive Date: 20070313
  Receipt Date: 20070227
  Transmission Date: 20070707
  Serious: Yes (Other)
  Sender: FDA-Public Use
  Company Number: GB-ELI_LILLY_AND_COMPANY-GBS000305570

PATIENT
  Age: 46 Year
  Sex: Male

DRUGS (4)
  1. PROZAC [Suspect]
     Indication: OBSESSIVE-COMPULSIVE DISORDER
     Dosage: 20 MG, DAILY (1/D)
     Route: 048
     Dates: start: 19991101, end: 19990101
  2. CLOMIPRAMINE HCL [Concomitant]
     Dosage: 200 MG, DAILY (1/D)
     Route: 048
  3. HALOPERIDOL [Concomitant]
     Indication: CHOREA
     Dosage: 5 MG, 2/D
     Route: 048
  4. RISPERIDONE [Concomitant]
     Indication: CHOREA
     Dosage: 1 MG, 4/D

REACTIONS (6)
  - DECREASED APPETITE [None]
  - DEPRESSED MOOD [None]
  - DEPRESSION [None]
  - HUNTINGTON'S CHOREA [None]
  - SLEEP DISORDER [None]
  - TEARFULNESS [None]
